FAERS Safety Report 21981514 (Version 1)
Quarter: 2023Q1

REPORT INFORMATION
  Report Type: Spontaneous
  Country: US (occurrence: US)
  Receive Date: 20230211
  Receipt Date: 20230211
  Transmission Date: 20230418
  Serious: No
  Sender: FDA-Public Use
  Company Number: US-SA-SAC20230209001215

PATIENT
  Sex: Female

DRUGS (1)
  1. DUPIXENT [Suspect]
     Active Substance: DUPILUMAB
     Dosage: 300 MG FREQUENCY : OTHER
     Route: 058

REACTIONS (4)
  - Hordeolum [Recovered/Resolved]
  - Herpes virus infection [Unknown]
  - Injection site reaction [Unknown]
  - Dry eye [Recovered/Resolved]
